FAERS Safety Report 5029087-2 (Version None)
Quarter: 2006Q2

REPORT INFORMATION
  Report Type: 
  Country: None (occurrence: None)
  Receive Date: 20060613
  Receipt Date: 20060606
  Transmission Date: 20061013
  Serious: Yes (Hospitalization)
  Sender: FDA-Public Use
  Company Number: 200610539BVD

PATIENT
  Age: 72 Year
  Sex: Male

DRUGS (5)
  1. LEVITRA [Suspect]
     Indication: ERECTILE DYSFUNCTION
     Dosage: 20 MG, TOTAL DAILY, ORAL
     Route: 048
     Dates: start: 20060326
  2. ATACAND HCT [Concomitant]
  3. BELOC ZOK [Concomitant]
  4. ASPIRIN [Concomitant]
  5. PROSCAR [Concomitant]

REACTIONS (2)
  - CEREBRAL HAEMORRHAGE [None]
  - HYPERTENSION [None]
